FAERS Safety Report 22308899 (Version 1)
Quarter: 2023Q2

REPORT INFORMATION
  Report Type: Spontaneous
  Country: US (occurrence: None)
  Receive Date: 20230511
  Receipt Date: 20230511
  Transmission Date: 20230721
  Serious: No
  Sender: FDA-Public Use
  Company Number: US-ROCHE-3280162

PATIENT
  Age: 60 Year
  Sex: Male

DRUGS (1)
  1. OCREVUS [Suspect]
     Active Substance: OCRELIZUMAB
     Indication: Multiple sclerosis
     Route: 065

REACTIONS (6)
  - Mental disorder [Unknown]
  - Anorgasmia [Unknown]
  - Anal incontinence [Unknown]
  - Accident [Unknown]
  - Drug hypersensitivity [Unknown]
  - Bladder disorder [Unknown]
